FAERS Safety Report 10641818 (Version 1)
Quarter: 2014Q4

REPORT INFORMATION
  Report Type: Spontaneous
  Country: US (occurrence: US)
  Receive Date: 20141209
  Receipt Date: 20141209
  Transmission Date: 20150529
  Serious: No
  Sender: FDA-Public Use
  Company Number: US-BAUSCH-BL-2014-007335

PATIENT
  Age: 63 Year
  Sex: Female

DRUGS (2)
  1. XENAZINE [Suspect]
     Active Substance: TETRABENAZINE
     Indication: HUNTINGTON^S DISEASE
     Route: 048
     Dates: start: 200904
  2. XENAZINE [Suspect]
     Active Substance: TETRABENAZINE
     Dosage: 50 MG IN THE MORNING AND 50 MG IN THE EVENING
     Route: 048
     Dates: start: 2014

REACTIONS (3)
  - Mental disorder [Recovered/Resolved]
  - Movement disorder [Unknown]
  - Overdose [Unknown]

NARRATIVE: CASE EVENT DATE: 2014
